FAERS Safety Report 11110807 (Version 2)
Quarter: 2015Q4

REPORT INFORMATION
  Report Type: Spontaneous
  Country: US (occurrence: US)
  Receive Date: 20150513
  Receipt Date: 20151030
  Transmission Date: 20160304
  Serious: No
  Sender: FDA-Public Use
  Company Number: US-B.I. PHARMACEUTICALS,INC./RIDGEFIELD-2015-BI-23767BP

PATIENT
  Sex: Female

DRUGS (1)
  1. COMBIVENT [Suspect]
     Active Substance: ALBUTEROL SULFATE\IPRATROPIUM BROMIDE
     Indication: CHRONIC OBSTRUCTIVE PULMONARY DISEASE
     Dosage: STRENGTH: 20 MCG / 100 MCG; DAILY DOSE: 40 MCG/ 200 MCG
     Route: 055

REACTIONS (10)
  - Rash [Unknown]
  - Arthralgia [Unknown]
  - Lip injury [Unknown]
  - Pruritus [Unknown]
  - Pain in extremity [Unknown]
  - Swollen tongue [Unknown]
  - Dyspnoea [Unknown]
  - Lip swelling [Unknown]
  - Muscle twitching [Unknown]
  - Hypersensitivity [Unknown]
